FAERS Safety Report 8682214 (Version 3)
Quarter: 2012Q4

REPORT INFORMATION
  Report Type: Report from Study
  Country: US (occurrence: US)
  Receive Date: 20120725
  Receipt Date: 20120918
  Transmission Date: 20130627
  Serious: Yes (Hospitalization)
  Sender: FDA-Public Use
  Company Number: US-JNJFOC-20120710211

PATIENT
  Age: 18 Year
  Sex: Male
  Weight: 70.4 kg

DRUGS (3)
  1. REMICADE [Suspect]
     Indication: INFLAMMATORY BOWEL DISEASE
     Route: 042
     Dates: start: 20091125
  2. ALBUTEROL [Concomitant]
  3. ADVAIR [Concomitant]

REACTIONS (1)
  - Nephrolithiasis [Recovered/Resolved]
